FAERS Safety Report 10261888 (Version 2)
Quarter: 2014Q2

REPORT INFORMATION
  Report Type: Report from Study
  Country: CA (occurrence: CA)
  Receive Date: 20140626
  Receipt Date: 20140626
  Transmission Date: 20141212
  Serious: Yes (Hospitalization, Other)
  Sender: FDA-Public Use
  Company Number: PHHY2014CA060669

PATIENT
  Age: 48 Year
  Sex: Male

DRUGS (11)
  1. CLOZARIL [Suspect]
     Indication: SCHIZOPHRENIA, PARANOID TYPE
     Dosage: 400 MG, UNK
     Route: 048
     Dates: start: 20090330
  2. ASA [Concomitant]
     Dosage: 80 MG, UNK
  3. ATENOLOL [Concomitant]
     Dosage: 25 MG, UNK
  4. FENOFIBRATE [Concomitant]
     Dosage: 200 MG, UNK
  5. DDAVP                                   /UNK/ [Concomitant]
     Dosage: 120 UG, UNK
     Dates: start: 20140213
  6. PANTOPRAZOLE [Concomitant]
     Dosage: 40 MG, UNK
  7. SENNA [Concomitant]
  8. DETROL [Concomitant]
     Dosage: 4 MG, UNK
  9. HALOPERIDOL [Concomitant]
     Dosage: 1.5 MG, TID
     Dates: start: 20140213
  10. COGENTIN [Concomitant]
     Dosage: 1 MG, BID
  11. LAMOTRIGINE [Concomitant]
     Dosage: 100 MG, BID
     Dates: start: 20140131

REACTIONS (3)
  - Pneumonia [Recovered/Resolved]
  - Toxicity to various agents [Unknown]
  - Clostridium difficile colitis [Unknown]
